FAERS Safety Report 4514965-0 (Version None)
Quarter: 2004Q4

REPORT INFORMATION
  Report Type: 
  Country: None (occurrence: None)
  Receive Date: 20041129
  Receipt Date: 20041129
  Transmission Date: 20050328
  Serious: No
  Sender: FDA-Public Use
  Company Number: None

PATIENT
  Sex: Male
  Weight: 83.9154 kg

DRUGS (13)
  1. FORMOTEROL   12MCG [Suspect]
     Indication: ASTHMA
     Dosage: 1 CAPSULE   Q12H   RESPIRATOR
     Route: 055
     Dates: start: 20040723, end: 20040907
  2. ALLOPURINOL [Concomitant]
  3. ALBUTEROL [Concomitant]
  4. CHLORZOXAZONE [Concomitant]
  5. COLCHICINE [Concomitant]
  6. FLUTICASONE PROP [Concomitant]
  7. FOSINOPRIL NA [Concomitant]
  8. HYDROCODONE 5/ACETAMINOPHEN [Concomitant]
  9. IPATROPIUM BROMIDE [Concomitant]
  10. MONTELUKAST NA [Concomitant]
  11. PREDNISONE [Concomitant]
  12. TERAZOSIN HCL [Concomitant]
  13. THEOPHYLLINE  -QUALITEST- [Concomitant]

REACTIONS (2)
  - COUGH [None]
  - PHARMACEUTICAL PRODUCT COMPLAINT [None]
